FAERS Safety Report 19408365 (Version 2)
Quarter: 2021Q2

REPORT INFORMATION
  Report Type: Spontaneous
  Country: US (occurrence: US)
  Receive Date: 20210612
  Receipt Date: 20210619
  Transmission Date: 20210717
  Serious: Yes (Death, Other)
  Sender: FDA-Public Use
  Company Number: US-AMGEN-USASP2021089406

PATIENT
  Age: 47 Year
  Sex: Male

DRUGS (2)
  1. PEMBROLIZUMAB. [Suspect]
     Active Substance: PEMBROLIZUMAB
     Indication: METASTATIC MALIGNANT MELANOMA
     Dosage: UNK
     Route: 065
  2. IMLYGIC [Suspect]
     Active Substance: TALIMOGENE LAHERPAREPVEC
     Indication: METASTATIC MALIGNANT MELANOMA
     Dosage: UNK
     Route: 026

REACTIONS (3)
  - Off label use [Unknown]
  - Death [Fatal]
  - Malignant melanoma [Unknown]
